FAERS Safety Report 7492420-6 (Version None)
Quarter: 2011Q2

REPORT INFORMATION
  Report Type: 
  Country: None (occurrence: None)
  Receive Date: 20110519
  Receipt Date: 20110516
  Transmission Date: 20111010
  Serious: Yes (Other)
  Sender: FDA-Public Use
  Company Number: US-ROXANE LABORATORIES, INC.-2011-RO-00659RO

PATIENT
  Age: 44 Year
  Sex: Female

DRUGS (4)
  1. MEGESTROL ACETATE [Suspect]
     Dosage: 40 MG
     Dates: start: 20090901, end: 20091001
  2. MEGESTROL ACETATE [Suspect]
     Indication: PITUITARY-DEPENDENT CUSHING'S SYNDROME
     Dosage: 20 MG
     Dates: start: 20090701, end: 20090901
  3. MEGESTROL ACETATE [Suspect]
     Dosage: 60 MG
     Dates: start: 20091001
  4. LEVOTHYROXINE SODIUM [Suspect]
     Indication: SECONDARY HYPOTHYROIDISM
     Dates: start: 20070101

REACTIONS (4)
  - FLATULENCE [None]
  - CONSTIPATION [None]
  - WEIGHT INCREASED [None]
  - INCREASED APPETITE [None]
